FAERS Safety Report 6823558-1 (Version None)
Quarter: 2010Q3

REPORT INFORMATION
  Report Type: 
  Country: None (occurrence: None)
  Receive Date: 20100708
  Receipt Date: 20100630
  Transmission Date: 20110219
  Serious: Yes (Hospitalization, Other)
  Sender: FDA-Public Use
  Company Number: US-BAXTER-2010BH009326

PATIENT
  Age: 36 Year
  Sex: Male

DRUGS (3)
  1. DIANEAL [Suspect]
     Indication: PERITONEAL DIALYSIS
     Route: 033
     Dates: end: 20100413
  2. EXTRANEAL [Suspect]
     Indication: FLUID OVERLOAD
     Route: 033
     Dates: start: 20100101, end: 20100201
  3. UNSPECIFIED ANTIBIOTICS [Suspect]
     Indication: SERUM SICKNESS
     Route: 065
     Dates: start: 20100201, end: 20100201

REACTIONS (10)
  - CARDIAC DISORDER [None]
  - CONGESTIVE CARDIOMYOPATHY [None]
  - CYANOSIS [None]
  - FUNGAL PERITONITIS [None]
  - HEPATIC FAILURE [None]
  - LACTIC ACIDOSIS [None]
  - LEUKOCYTOCLASTIC VASCULITIS [None]
  - LIVER DISORDER [None]
  - PERITONITIS SCLEROSING [None]
  - SERUM SICKNESS [None]
